FAERS Safety Report 7344498-8 (Version None)
Quarter: 2011Q1

REPORT INFORMATION
  Report Type: 
  Country: None (occurrence: None)
  Receive Date: 20110310
  Receipt Date: 20110307
  Transmission Date: 20110831
  Serious: Yes (Death)
  Sender: FDA-Public Use
  Company Number: AR-EISAI INC-E7389-00445-CLI-AR

PATIENT
  Sex: Female
  Weight: 99 kg

DRUGS (9)
  1. IV FLUIDS [Concomitant]
     Route: 042
     Dates: start: 20080602
  2. AMINOPHYLLINE [Concomitant]
     Indication: INFECTION
     Route: 042
     Dates: start: 20080602
  3. KLOSIDOL [Concomitant]
     Indication: PAIN
     Route: 048
     Dates: start: 20080215, end: 20080602
  4. AMPICILINA [Concomitant]
     Indication: INFECTION
     Dosage: Q8H
     Route: 042
     Dates: start: 20080602
  5. E7389 (BOLD) [Suspect]
     Indication: BREAST CANCER
     Route: 042
     Dates: start: 20080513, end: 20080520
  6. PARACETAMOL [Concomitant]
     Indication: PAIN
     Route: 048
     Dates: start: 20080215, end: 20080602
  7. DOPAMINE [Concomitant]
     Indication: HYPOTENSION
     Route: 042
     Dates: start: 20080602, end: 20080603
  8. OXYGEN [Concomitant]
     Dates: start: 20080602
  9. ENALAPRIL MALEATE [Concomitant]
     Dates: start: 20060101, end: 20080603

REACTIONS (1)
  - SEPSIS [None]
